FAERS Safety Report 7206645-8 (Version None)
Quarter: 2011Q1

REPORT INFORMATION
  Report Type: 
  Country: None (occurrence: None)
  Receive Date: 20110103
  Receipt Date: 20101227
  Transmission Date: 20110831
  Serious: Yes (Hospitalization)
  Sender: FDA-Public Use
  Company Number: US-SHIRE-SPV1-2010-02224

PATIENT
  Sex: Male
  Weight: 36.281 kg

DRUGS (2)
  1. CLONIDINE [Concomitant]
     Indication: SLEEP DISORDER
     Dosage: UNK, UNKNOWN
     Route: 048
     Dates: start: 20080101
  2. VYVANSE [Suspect]
     Indication: ATTENTION DEFICIT/HYPERACTIVITY DISORDER
     Dosage: 40 MG, 1X/DAY:QD
     Route: 048
     Dates: start: 20090101

REACTIONS (3)
  - CONVULSION [None]
  - DYSPNOEA [None]
  - FALL [None]
